FAERS Safety Report 6257100-3 (Version None)
Quarter: 2009Q3

REPORT INFORMATION
  Report Type: 
  Country: None (occurrence: None)
  Receive Date: 20090706
  Receipt Date: 20090625
  Transmission Date: 20100115
  Serious: Yes (Hospitalization)
  Sender: FDA-Public Use
  Company Number: B0580651A

PATIENT
  Sex: Female

DRUGS (4)
  1. AUGMENTIN '125' [Suspect]
     Indication: SINUSITIS
     Dosage: 1G THREE TIMES PER DAY
     Route: 048
     Dates: start: 20090214, end: 20090221
  2. SOLUPRED [Suspect]
     Indication: SINUSITIS
     Dosage: 20MG VARIABLE DOSE
     Route: 048
     Dates: start: 20090214, end: 20090218
  3. NASACORT [Suspect]
     Indication: SINUSITIS
     Dosage: 1UNIT TWICE PER DAY
     Route: 055
     Dates: start: 20090214, end: 20090221
  4. FLUIMUCIL [Suspect]
     Indication: SINUSITIS
     Dosage: 3UNIT PER DAY
     Route: 048
     Dates: start: 20090214, end: 20090221

REACTIONS (17)
  - ACUTE GENERALISED EXANTHEMATOUS PUSTULOSIS [None]
  - BLISTER [None]
  - EOSINOPHILIA [None]
  - FACE OEDEMA [None]
  - GENITAL ERYTHEMA [None]
  - INFLAMMATION [None]
  - LEUKOCYTOSIS [None]
  - LYMPHADENOPATHY [None]
  - MUCOUS MEMBRANE DISORDER [None]
  - ORAL MUCOSAL ERYTHEMA [None]
  - PRURITUS [None]
  - PYREXIA [None]
  - RASH ERYTHEMATOUS [None]
  - RASH PAPULAR [None]
  - RASH PUSTULAR [None]
  - SKIN EXFOLIATION [None]
  - TOXIC SKIN ERUPTION [None]
